FAERS Safety Report 6701757-7 (Version None)
Quarter: 2010Q2

REPORT INFORMATION
  Report Type: 
  Country: None (occurrence: None)
  Receive Date: 20100429
  Receipt Date: 20100422
  Transmission Date: 20101027
  Serious: Yes (Other)
  Sender: FDA-Public Use
  Company Number: PHHY2010JP23537

PATIENT
  Age: 42 Year
  Sex: Male

DRUGS (1)
  1. TEGRETOL [Suspect]
     Indication: LIP PAIN
     Dosage: UNK

REACTIONS (2)
  - CENTRAL NERVOUS SYSTEM LESION [None]
  - CRANIOTOMY [None]
